FAERS Safety Report 23331714 (Version 1)
Quarter: 2023Q4

REPORT INFORMATION
  Report Type: Spontaneous
  Country: SE (occurrence: SE)
  Receive Date: 20231222
  Receipt Date: 20231222
  Transmission Date: 20240110
  Serious: Yes (Death)
  Sender: FDA-Public Use
  Company Number: None

PATIENT

DRUGS (5)
  1. XCOPRI [Suspect]
     Active Substance: CENOBAMATE
     Indication: Epilepsy
     Dosage: 25 MG + 12,5 MG
     Route: 048
     Dates: start: 20231114
  2. FYCOMPA [Suspect]
     Active Substance: PERAMPANEL
     Indication: Epilepsy
     Dosage: 2 MG AT NIGHT (2 MG,1 D)
     Route: 065
     Dates: start: 20211218
  3. VIMPAT [Suspect]
     Active Substance: LACOSAMIDE
     Indication: Epilepsy
     Dosage: 200 MG X 2 (200 MG,1 IN 12 HR)
     Route: 048
     Dates: start: 20190118
  4. TRILEPTAL [Suspect]
     Active Substance: OXCARBAZEPINE
     Indication: Product used for unknown indication
     Dosage: 900+0+1200
     Route: 048
     Dates: start: 20140930
  5. MIDAZOLAM HYDROCHLORIDE [Concomitant]
     Active Substance: MIDAZOLAM HYDROCHLORIDE
     Indication: Product used for unknown indication
     Dosage: 10 MG AS NEEDED (10MG,1 AS REQUIRED)
     Route: 002
     Dates: start: 20150212

REACTIONS (3)
  - Off label use [Fatal]
  - Sudden unexplained death in epilepsy [Fatal]
  - Death [Fatal]

NARRATIVE: CASE EVENT DATE: 20231128
